FAERS Safety Report 17593321 (Version 1)
Quarter: 2020Q1

REPORT INFORMATION
  Report Type: Spontaneous
  Country: US (occurrence: US)
  Receive Date: 20200327
  Receipt Date: 20200327
  Transmission Date: 20200409
  Serious: No
  Sender: FDA-Public Use
  Company Number: US-TOPROL ACQUISITION LLC-2019-TOP-000753

PATIENT
  Sex: Female
  Weight: 94.79 kg

DRUGS (2)
  1. LYNPARZA [Concomitant]
     Active Substance: OLAPARIB
     Indication: OVARIAN CANCER METASTATIC
     Dosage: 300 MG, BID
     Route: 048
     Dates: start: 20190521, end: 20190729
  2. METOPROLOL SUCCINATE. [Suspect]
     Active Substance: METOPROLOL SUCCINATE
     Indication: CARDIAC OPERATION
     Dosage: 25 MG, BID
     Route: 048
     Dates: start: 201710, end: 201905

REACTIONS (2)
  - Off label use [Recovered/Resolved]
  - Inappropriate schedule of product administration [Recovered/Resolved]
